FAERS Safety Report 20228348 (Version 5)
Quarter: 2022Q1

REPORT INFORMATION
  Report Type: Spontaneous
  Country: US (occurrence: US)
  Receive Date: 20211224
  Receipt Date: 20220221
  Transmission Date: 20220423
  Serious: Yes (Other)
  Sender: FDA-Public Use
  Company Number: US-ORGANON-O2112USA002355

PATIENT
  Age: 17 Year
  Sex: Female
  Weight: 47.166 kg

DRUGS (2)
  1. NEXPLANON [Suspect]
     Active Substance: ETONOGESTREL
     Indication: Contraception
     Dosage: 1 IMPLANT EVERY THREE YEARS (LEFT NON DOMINANT ARM)
     Route: 059
     Dates: start: 20151103
  2. IUD NOS [Suspect]
     Active Substance: COPPER OR LEVONORGESTREL
     Indication: Contraception
     Dosage: UNK
     Dates: start: 2015, end: 201909

REACTIONS (10)
  - Pregnancy with implant contraceptive [Recovered/Resolved]
  - Device dislocation [Not Recovered/Not Resolved]
  - Device issue [Not Recovered/Not Resolved]
  - Unintended pregnancy [Recovered/Resolved]
  - Complication associated with device [Recovered/Resolved]
  - Complication associated with device [Not Recovered/Not Resolved]
  - Complication of device removal [Not Recovered/Not Resolved]
  - Heavy menstrual bleeding [Unknown]
  - Product use issue [Unknown]
  - Incorrect product administration duration [Unknown]

NARRATIVE: CASE EVENT DATE: 20151113
